FAERS Safety Report 7409100-5 (Version None)
Quarter: 2011Q2

REPORT INFORMATION
  Report Type: 
  Country: None (occurrence: None)
  Receive Date: 20110408
  Receipt Date: 20110408
  Transmission Date: 20111010
  Serious: No
  Sender: FDA-Public Use
  Company Number: None

PATIENT
  Age: 75 Year
  Sex: Female

DRUGS (2)
  1. TRAMADOL [Suspect]
     Dates: start: 20090722, end: 20090813
  2. ANCEF [Suspect]
     Dates: start: 20090722, end: 20090722

REACTIONS (6)
  - ALANINE AMINOTRANSFERASE INCREASED [None]
  - RASH ERYTHEMATOUS [None]
  - ASPARTATE AMINOTRANSFERASE INCREASED [None]
  - LIVER DISORDER [None]
  - BLOOD ALKALINE PHOSPHATASE INCREASED [None]
  - YELLOW SKIN [None]
